FAERS Safety Report 16479691 (Version 1)
Quarter: 2019Q2

REPORT INFORMATION
  Report Type: Spontaneous
  Country: JP (occurrence: JP)
  Receive Date: 20190626
  Receipt Date: 20190626
  Transmission Date: 20190711
  Serious: Yes (Hospitalization)
  Sender: FDA-Public Use
  Company Number: PHJP2019JP007691

PATIENT
  Age: 14 Year
  Sex: Male
  Weight: 32.5 kg

DRUGS (2)
  1. PHENOBARBITAL. [Suspect]
     Active Substance: PHENOBARBITAL
     Indication: EPILEPSY
     Dosage: UNK
     Route: 048
  2. CARBAMAZEPINE. [Suspect]
     Active Substance: CARBAMAZEPINE
     Indication: EPILEPSY
     Dosage: UNK
     Route: 048

REACTIONS (8)
  - Joint contracture [Unknown]
  - Muscle spasticity [Unknown]
  - Osteoporosis [Unknown]
  - Intellectual disability [Unknown]
  - Decreased appetite [Unknown]
  - Dysphonia [Unknown]
  - Femur fracture [Recovered/Resolved]
  - Cerebral palsy [Unknown]
